FAERS Safety Report 7908647-2 (Version None)
Quarter: 2011Q4

REPORT INFORMATION
  Report Type: 
  Country: None (occurrence: None)
  Receive Date: 20111111
  Receipt Date: 20111109
  Transmission Date: 20120403
  Serious: Yes (Death)
  Sender: FDA-Public Use
  Company Number: PHFR2011GB06169

PATIENT
  Sex: Male

DRUGS (3)
  1. HEROIN [Suspect]
  2. SERTRALINE HYDROCHLORIDE [Concomitant]
     Dosage: 200 MG/DAY
     Dates: start: 20100701
  3. CLOZARIL [Suspect]
     Indication: SCHIZOPHRENIA
     Dosage: 400 MG/DAY
     Route: 048
     Dates: start: 20110205

REACTIONS (1)
  - OVERDOSE [None]
